FAERS Safety Report 10337912 (Version 2)
Quarter: 2014Q3

REPORT INFORMATION
  Report Type: Spontaneous
  Country: US (occurrence: US)
  Receive Date: 20140724
  Receipt Date: 20140724
  Transmission Date: 20150326
  Serious: No
  Sender: FDA-Public Use
  Company Number: US-UNITED THERAPEUTICS-UTC-047495

PATIENT
  Sex: Female
  Weight: 106.59 kg

DRUGS (5)
  1. REVATIO [Concomitant]
     Active Substance: SILDENAFIL CITRATE
  2. TYVASO [Suspect]
     Active Substance: TREPROSTINIL
     Dosage: 18-54 MICROGRAMS
     Dates: start: 20120303, end: 20140331
  3. COUMADIN [Concomitant]
     Active Substance: WARFARIN SODIUM
  4. TYVASO [Suspect]
     Active Substance: TREPROSTINIL
     Dosage: 18-54 MICROGRAMS
     Dates: start: 20120303, end: 20140331
  5. REMODULIN [Suspect]
     Active Substance: TREPROSTINIL
     Dosage: 0.019 UG/KG/MIN
     Route: 058
     Dates: start: 20140331

REACTIONS (2)
  - Mobility decreased [Unknown]
  - Pain in extremity [Unknown]

NARRATIVE: CASE EVENT DATE: 2014
